FAERS Safety Report 16746129 (Version 1)
Quarter: 2019Q3

REPORT INFORMATION
  Report Type: Spontaneous
  Country: US (occurrence: US)
  Receive Date: 20190827
  Receipt Date: 20190827
  Transmission Date: 20191005
  Serious: Yes (Hospitalization)
  Sender: FDA-Public Use
  Company Number: US-ABBVIE-19K-163-2686400-00

PATIENT
  Age: 60 Year
  Sex: Male
  Weight: 97.16 kg

DRUGS (1)
  1. MAVYRET [Suspect]
     Active Substance: GLECAPREVIR\PIBRENTASVIR
     Indication: PRODUCT USED FOR UNKNOWN INDICATION
     Dosage: 100/40MG
     Route: 048
     Dates: start: 20180808, end: 20180909

REACTIONS (1)
  - Diarrhoea [Unknown]
